FAERS Safety Report 16268670 (Version 4)
Quarter: 2019Q2

REPORT INFORMATION
  Report Type: Report from Study
  Country: DE (occurrence: DE)
  Receive Date: 20190503
  Receipt Date: 20190517
  Transmission Date: 20190711
  Serious: Yes (Hospitalization)
  Sender: FDA-Public Use
  Company Number: DE-ROCHE-2308332

PATIENT
  Age: 70 Year
  Sex: Male

DRUGS (6)
  1. TRASTUZUMAB. [Suspect]
     Active Substance: TRASTUZUMAB
     Indication: PRODUCT USED FOR UNKNOWN INDICATION
     Route: 042
     Dates: start: 20181205, end: 20190117
  2. PERTUZUMAB. [Suspect]
     Active Substance: PERTUZUMAB
     Indication: PRODUCT USED FOR UNKNOWN INDICATION
     Route: 042
     Dates: start: 20181205, end: 20190117
  3. FLUOROURACIL. [Suspect]
     Active Substance: FLUOROURACIL
     Indication: PRODUCT USED FOR UNKNOWN INDICATION
     Dosage: 400 MG/M2 ON DAY , THEN 1200 MG/M2 /D AND DAY 2 AND 3
     Route: 042
     Dates: start: 20181205, end: 20190117
  4. OXALIPLATIN. [Suspect]
     Active Substance: OXALIPLATIN
     Indication: PRODUCT USED FOR UNKNOWN INDICATION
     Route: 042
     Dates: start: 20181205, end: 20190117
  5. DOCETAXEL. [Suspect]
     Active Substance: DOCETAXEL
     Indication: PRODUCT USED FOR UNKNOWN INDICATION
     Route: 042
     Dates: start: 20181205, end: 20190107
  6. MIVACURIUM [Suspect]
     Active Substance: MIVACURIUM
     Indication: ACETYLCHOLINESTERASE DEFICIENCY
     Dosage: ROUTE: INTUBATION
     Route: 065
     Dates: start: 20190408, end: 20190408

REACTIONS (1)
  - Acetylcholinesterase deficiency [Recovered/Resolved]

NARRATIVE: CASE EVENT DATE: 20190408
